FAERS Safety Report 5391917-2 (Version None)
Quarter: 2007Q3

REPORT INFORMATION
  Report Type: 
  Country: None (occurrence: None)
  Receive Date: 20070720
  Receipt Date: 20070716
  Transmission Date: 20080115
  Serious: Yes (Other)
  Sender: FDA-Public Use
  Company Number: PHNU2007DE02525

PATIENT
  Age: 68 Year
  Sex: Male
  Weight: 103 kg

DRUGS (1)
  1. AREDIA [Suspect]
     Indication: PLASMACYTOMA
     Route: 065
     Dates: start: 19980401, end: 20051001

REACTIONS (7)
  - BIOPSY BONE ABNORMAL [None]
  - BONE DISORDER [None]
  - BONE LESION EXCISION [None]
  - ORAL SURGERY [None]
  - OSTEOMYELITIS [None]
  - OSTEONECROSIS [None]
  - TOOTH EXTRACTION [None]
